FAERS Safety Report 13627404 (Version 1)
Quarter: 2017Q2

REPORT INFORMATION
  Report Type: Report from Study
  Country: US (occurrence: US)
  Receive Date: 20170608
  Receipt Date: 20170608
  Transmission Date: 20170830
  Serious: Yes (Other)
  Sender: FDA-Public Use
  Company Number: US-JNJFOC-20170606202

PATIENT
  Sex: Male

DRUGS (10)
  1. COSOPT [Concomitant]
     Active Substance: DORZOLAMIDE HYDROCHLORIDE\TIMOLOL MALEATE
  2. BACITRACIN. [Concomitant]
     Active Substance: BACITRACIN
  3. PREDNISONE. [Concomitant]
     Active Substance: PREDNISONE
  4. ACYCLOVIR. [Concomitant]
     Active Substance: ACYCLOVIR
  5. ALLOPURINOL. [Concomitant]
     Active Substance: ALLOPURINOL
  6. IMBRUVICA [Suspect]
     Active Substance: IBRUTINIB
     Indication: CHRONIC LYMPHOCYTIC LEUKAEMIA
     Route: 048
     Dates: start: 20160705
  7. TOPROL XL [Concomitant]
     Active Substance: METOPROLOL SUCCINATE
  8. FLOMAX [Concomitant]
     Active Substance: TAMSULOSIN HYDROCHLORIDE
  9. SULFASALAZINE. [Concomitant]
     Active Substance: SULFASALAZINE
  10. METFORMIN [Concomitant]
     Active Substance: METFORMIN HYDROCHLORIDE

REACTIONS (1)
  - Cardiac disorder [Unknown]
